FAERS Safety Report 8085025-X (Version None)
Quarter: 2012Q1

REPORT INFORMATION
  Report Type: 
  Country: None (occurrence: None)
  Receive Date: 20120128
  Receipt Date: 20110321
  Transmission Date: 20120608
  Serious: No
  Sender: FDA-Public Use
  Company Number: US-ABBOTT-11P-163-0713172-00

PATIENT
  Age: 35 Year
  Sex: Female

DRUGS (4)
  1. HYDROCHLOROTHIAZIDE [Concomitant]
     Indication: DIURETIC THERAPY
  2. ZOLOFT [Concomitant]
     Indication: PRODUCT USED FOR UNKNOWN INDICATION
  3. LABETALOL HCL [Concomitant]
     Indication: BLOOD PRESSURE
  4. HUMIRA [Suspect]
     Indication: CROHN'S DISEASE
     Dates: start: 20110217

REACTIONS (1)
  - HOT FLUSH [None]
